FAERS Safety Report 8702565 (Version 3)
Quarter: 2012Q4

REPORT INFORMATION
  Report Type: Report from Study
  Country: DE (occurrence: DE)
  Receive Date: 20120803
  Receipt Date: 20120919
  Transmission Date: 20130627
  Serious: Yes (Hospitalization)
  Sender: FDA-Public Use
  Company Number: DE-ROCHE-1092884

PATIENT
  Age: 81 Year
  Sex: Male
  Weight: 59 kg

DRUGS (4)
  1. AVASTIN [Suspect]
     Indication: RECTAL CANCER METASTATIC
     Dosage: date of last dose prior to sae: 12/Jun/2012
     Route: 042
     Dates: start: 20120327, end: 20120612
  2. LEUCOVORIN [Suspect]
     Indication: RECTAL CANCER METASTATIC
     Route: 042
     Dates: start: 20120327, end: 20120612
  3. FLUOROURACIL [Suspect]
     Indication: RECTAL CANCER METASTATIC
     Route: 042
     Dates: start: 20120327, end: 20120612
  4. KEVATRIL [Concomitant]
     Indication: PROPHYLAXIS OF NAUSEA AND VOMITING
     Route: 042
     Dates: start: 20120327, end: 20120612

REACTIONS (6)
  - Hypotension [Recovered/Resolved]
  - Circulatory collapse [Not Recovered/Not Resolved]
  - Haemorrhage [Not Recovered/Not Resolved]
  - Dehydration [Recovered/Resolved]
  - Acute prerenal failure [Recovered/Resolved]
  - General physical health deterioration [Recovered/Resolved]
